FAERS Safety Report 14757779 (Version 3)
Quarter: 2020Q1

REPORT INFORMATION
  Report Type: Spontaneous
  Country: US (occurrence: US)
  Receive Date: 20180413
  Receipt Date: 20200330
  Transmission Date: 20200409
  Serious: No
  Sender: FDA-Public Use
  Company Number: US-009507513-1804USA005736

PATIENT
  Age: 78 Year
  Sex: Female

DRUGS (4)
  1. DULERA [Suspect]
     Active Substance: FORMOTEROL FUMARATE DIHYDRATE\MOMETASONE FUROATE
     Indication: CHRONIC OBSTRUCTIVE PULMONARY DISEASE
     Dosage: 2 PUFFS IN AM, 2 PUFFS IN PM
     Route: 055
     Dates: start: 202002
  2. SPIRIVA [Concomitant]
     Active Substance: TIOTROPIUM BROMIDE MONOHYDRATE
  3. ALLOPURINOL. [Concomitant]
     Active Substance: ALLOPURINOL
     Dosage: UNK
  4. DULERA [Suspect]
     Active Substance: FORMOTEROL FUMARATE DIHYDRATE\MOMETASONE FUROATE
     Indication: PNEUMONIA
     Dosage: 2 PUFFS, TWICE A DAY
     Route: 055
     Dates: start: 201804

REACTIONS (8)
  - Product quality issue [Unknown]
  - Product quality issue [Unknown]
  - Product dose omission [Unknown]
  - Product use in unapproved indication [Unknown]
  - Skin exfoliation [Not Recovered/Not Resolved]
  - Product dose omission [Unknown]
  - Poor quality device used [Unknown]
  - Intentional underdose [Unknown]

NARRATIVE: CASE EVENT DATE: 201804
